FAERS Safety Report 6896210-4 (Version None)
Quarter: 2010Q3

REPORT INFORMATION
  Report Type: 
  Country: None (occurrence: None)
  Receive Date: 20100802
  Receipt Date: 20100726
  Transmission Date: 20110219
  Serious: Yes (Congenital Anomaly)
  Sender: FDA-Public Use
  Company Number: A0872560A

PATIENT
  Sex: Female
  Weight: 2.7 kg

DRUGS (8)
  1. COMBIVIR [Suspect]
     Indication: HIV INFECTION
     Dates: start: 20000911
  2. SUSTIVA [Suspect]
     Indication: HIV INFECTION
     Dates: start: 20000911, end: 20021106
  3. VIRACEPT [Suspect]
     Indication: HIV INFECTION
     Dates: start: 20021107, end: 20030623
  4. AMOXICILLIN [Concomitant]
  5. FOLIC ACID [Concomitant]
  6. IRON [Concomitant]
  7. NYSTATIN [Concomitant]
  8. RETINOL [Concomitant]

REACTIONS (3)
  - DRUG EXPOSURE DURING PREGNANCY [None]
  - MELANOCYTIC NAEVUS [None]
  - PATENT DUCTUS ARTERIOSUS [None]
